FAERS Safety Report 17712210 (Version 2)
Quarter: 2020Q2

REPORT INFORMATION
  Report Type: Spontaneous
  Country: US (occurrence: US)
  Receive Date: 20200427
  Receipt Date: 20200513
  Transmission Date: 20200714
  Serious: Yes (Other)
  Sender: FDA-Public Use
  Company Number: US-BAYER-2020-063188

PATIENT
  Age: 79 Year
  Sex: Male

DRUGS (2)
  1. CORICIDIN HBP CHEST CONGESTION AND COUGH [Suspect]
     Active Substance: DEXTROMETHORPHAN HYDROBROMIDE\GUAIFENESIN
     Indication: NASOPHARYNGITIS
  2. CORICIDIN HBP CHEST CONGESTION AND COUGH [Suspect]
     Active Substance: DEXTROMETHORPHAN HYDROBROMIDE\GUAIFENESIN
     Indication: ALLERGIC RESPIRATORY SYMPTOM
     Dosage: AS LABELLED
     Route: 048
     Dates: end: 20200415

REACTIONS (5)
  - Dyspnoea [Recovered/Resolved]
  - Regurgitation [Unknown]
  - Oropharyngeal pain [Recovered/Resolved]
  - Foreign body in throat [Recovered/Resolved]
  - Choking [Recovered/Resolved]

NARRATIVE: CASE EVENT DATE: 20200415
